FAERS Safety Report 5047126-X (Version None)
Quarter: 2006Q3

REPORT INFORMATION
  Report Type: 
  Country: None (occurrence: None)
  Receive Date: 20060703
  Receipt Date: 20060621
  Transmission Date: 20061208
  Serious: Yes (Other)
  Sender: FDA-Public Use
  Company Number: 2006074450

PATIENT
  Age: 57 Year
  Sex: Female

DRUGS (1)
  1. LYRICA [Suspect]
     Indication: NEURALGIA
     Dosage: 450 MG (150 MG, 3 IN 1 D), ORAL
     Route: 048

REACTIONS (4)
  - DIPLOPIA [None]
  - SPEECH DISORDER [None]
  - STRESS URINARY INCONTINENCE [None]
  - WEIGHT INCREASED [None]
